FAERS Safety Report 18667649 (Version 1)
Quarter: 2020Q4

REPORT INFORMATION
  Report Type: Spontaneous
  Country: US (occurrence: US)
  Receive Date: 20201228
  Receipt Date: 20201228
  Transmission Date: 20210114
  Serious: Yes (Hospitalization, Other)
  Sender: FDA-Public Use
  Company Number: US-HIKMA PHARMACEUTICALS USA INC.-US-H14001-20-05728

PATIENT
  Age: 72 Year
  Sex: Female

DRUGS (3)
  1. FLUOROURACIL. [Suspect]
     Active Substance: FLUOROURACIL
     Indication: GALLBLADDER ADENOCARCINOMA
     Route: 042
     Dates: start: 20201027
  2. NANOLIPOSOMAL IRINOTECAN [Suspect]
     Active Substance: IRINOTECAN
     Indication: GALLBLADDER ADENOCARCINOMA
     Route: 042
     Dates: start: 20201027
  3. LEUCOVORIN. [Suspect]
     Active Substance: LEUCOVORIN
     Indication: GALLBLADDER ADENOCARCINOMA
     Route: 042
     Dates: start: 20201027

REACTIONS (9)
  - Acute kidney injury [Recovered/Resolved]
  - Hypovolaemia [Unknown]
  - Fatigue [Unknown]
  - Decreased appetite [Unknown]
  - Hypophagia [Unknown]
  - Urinary tract infection [Unknown]
  - Asthenia [Unknown]
  - Nausea [Unknown]
  - Dehydration [Unknown]

NARRATIVE: CASE EVENT DATE: 20201104
